FAERS Safety Report 9407548 (Version 1)
Quarter: 2013Q3

REPORT INFORMATION
  Report Type: Spontaneous
  Country: DE (occurrence: DE)
  Receive Date: 20130718
  Receipt Date: 20130718
  Transmission Date: 20140515
  Serious: Yes (Other)
  Sender: FDA-Public Use
  Company Number: DE-JNJFOC-20130707279

PATIENT
  Age: 35 Year
  Sex: Female

DRUGS (4)
  1. REMICADE [Suspect]
     Indication: CROHN^S DISEASE
     Route: 042
     Dates: start: 20130702
  2. BUDENOFALK [Concomitant]
     Route: 065
  3. CALCIMAGON D3 [Concomitant]
     Route: 065
  4. VITAMIN B12 [Concomitant]
     Route: 065

REACTIONS (1)
  - Pancreatic enzymes increased [Not Recovered/Not Resolved]
